FAERS Safety Report 12802412 (Version 1)
Quarter: 2016Q4

REPORT INFORMATION
  Report Type: Spontaneous
  Country: US (occurrence: US)
  Receive Date: 20161003
  Receipt Date: 20161003
  Transmission Date: 20170207
  Serious: Yes (Other)
  Sender: FDA-Public Use
  Company Number: None

PATIENT
  Age: 73 Year
  Sex: Female
  Weight: 54.48 kg

DRUGS (22)
  1. BIEST [Concomitant]
     Active Substance: ESTRADIOL\ESTRIOL
  2. PROGESTERONE. [Concomitant]
     Active Substance: PROGESTERONE
  3. VITAMIN B COMPLEX [Concomitant]
     Active Substance: CYANOCOBALAMIN\DEXPANTHENOL\NIACINAMIDE\PYRIDOXINE HYDROCHLORIDE\RIBOFLAVIN 5^-PHOSPHATE SODIUM\THIAMINE HYDROCHLORIDE\VITAMIN B COMPLEX
  4. LATANOPROST. [Concomitant]
     Active Substance: LATANOPROST
  5. VITAMIN B12 [Concomitant]
     Active Substance: CYANOCOBALAMIN
  6. MAG./CAL. [Concomitant]
  7. ARMOUR THYROID [Concomitant]
     Active Substance: THYROID, PORCINE
  8. HYDROCODONE/ACETAMIN [Concomitant]
  9. PROMETHAZINE [Concomitant]
     Active Substance: PROMETHAZINE\PROMETHAZINE HYDROCHLORIDE
  10. COQ10 [Concomitant]
     Active Substance: UBIDECARENONE
  11. C VIT. [Concomitant]
  12. TIMOLO MAL 0.5% OPSOL AKORN [Suspect]
     Active Substance: TIMOLOL MALEATE
     Indication: GLAUCOMA
     Dosage: 5 ML 1 X IN AM IN BOTH EYES
     Route: 047
     Dates: start: 20160825, end: 20160831
  13. MILK THISTLE [Concomitant]
     Active Substance: MILK THISTLE
  14. GRAPE SEED [Concomitant]
  15. MULTI VIT/MIN. [Concomitant]
  16. PYCNOGENAL [Concomitant]
  17. ASPIRIN. [Concomitant]
     Active Substance: ASPIRIN
  18. SILYMARIN [Concomitant]
     Active Substance: MILK THISTLE
  19. TUMERIC [Concomitant]
     Active Substance: TURMERIC
  20. CRANBERRY. [Concomitant]
     Active Substance: CRANBERRY
  21. POT. [Concomitant]
  22. BONE HEALTH COMBO [Concomitant]

REACTIONS (7)
  - Diarrhoea [None]
  - Retching [None]
  - Oesophageal pain [None]
  - Nausea [None]
  - Abdominal pain upper [None]
  - Asthenia [None]
  - Vomiting [None]

NARRATIVE: CASE EVENT DATE: 20160824
